FAERS Safety Report 22194682 (Version 4)
Quarter: 2023Q2

REPORT INFORMATION
  Report Type: Spontaneous
  Country: US (occurrence: US)
  Receive Date: 20230411
  Receipt Date: 20230608
  Transmission Date: 20230722
  Serious: Yes (Death, Other)
  Sender: FDA-Public Use
  Company Number: US-AUROBINDO-AUR-APL-2023-015524

PATIENT
  Sex: Female

DRUGS (1)
  1. MINOCYCLINE [Suspect]
     Active Substance: MINOCYCLINE HYDROCHLORIDE
     Indication: Confluent and reticulate papillomatosis
     Dosage: UNK
     Route: 065

REACTIONS (8)
  - Papilloedema [Fatal]
  - Optic atrophy [Unknown]
  - Blindness [Not Recovered/Not Resolved]
  - Idiopathic intracranial hypertension [Unknown]
  - Vision blurred [Not Recovered/Not Resolved]
  - Tinnitus [Unknown]
  - Visual impairment [Not Recovered/Not Resolved]
  - Gait disturbance [Unknown]
